FAERS Safety Report 7369179-6 (Version None)
Quarter: 2011Q1

REPORT INFORMATION
  Report Type: 
  Country: None (occurrence: None)
  Receive Date: 20110323
  Receipt Date: 20110317
  Transmission Date: 20110831
  Serious: No
  Sender: FDA-Public Use
  Company Number: US-PFIZER INC-2011059480

PATIENT
  Sex: Female
  Weight: 81.633 kg

DRUGS (4)
  1. PREMPRO [Suspect]
     Indication: MENOPAUSAL DISORDER
     Dosage: UNK
     Route: 048
  2. LEVOTHYROXINE [Concomitant]
     Indication: THYROID DISORDER
     Dosage: 125 MG, 1X/DAY
     Route: 048
  3. PREMPRO [Suspect]
     Indication: HOT FLUSH
  4. BENICAR [Concomitant]
     Indication: HYPERTENSION
     Dosage: 40 MG, 1X/DAY
     Route: 048

REACTIONS (2)
  - HOT FLUSH [None]
  - PAIN IN EXTREMITY [None]
